FAERS Safety Report 6720344-8 (Version None)
Quarter: 2010Q2

REPORT INFORMATION
  Report Type: 
  Country: None (occurrence: None)
  Receive Date: 20100511
  Receipt Date: 20100430
  Transmission Date: 20101027
  Serious: Yes (Other)
  Sender: FDA-Public Use
  Company Number: US-PFIZER INC-2010055668

PATIENT
  Sex: Male
  Weight: 63.492 kg

DRUGS (2)
  1. GEODON [Suspect]
     Indication: BIPOLAR DISORDER
     Dosage: 20 MG, 2X/DAY
     Route: 048
     Dates: start: 20100402, end: 20100413
  2. GEODON [Suspect]
     Indication: MANIA
     Dosage: 40 MG, 2X/DAY
     Route: 048
     Dates: start: 20100414, end: 20100416

REACTIONS (4)
  - ANGER [None]
  - HEADACHE [None]
  - SUICIDAL BEHAVIOUR [None]
  - THINKING ABNORMAL [None]
